FAERS Safety Report 7945451-3 (Version None)
Quarter: 2011Q4

REPORT INFORMATION
  Report Type: 
  Country: None (occurrence: None)
  Receive Date: 20111129
  Receipt Date: 20111117
  Transmission Date: 20120403
  Serious: Yes (Hospitalization)
  Sender: FDA-Public Use
  Company Number: US-ELI_LILLY_AND_COMPANY-US201111006061

PATIENT
  Sex: Female

DRUGS (10)
  1. HUMALOG MIX 50/50 [Suspect]
     Indication: DIABETES MELLITUS
     Dosage: 60 U, EACH MORNING
     Dates: start: 20070101
  2. HUMULIN R [Concomitant]
     Dosage: UNK
  3. BYETTA [Concomitant]
     Dosage: UNK
  4. METFORMIN HCL [Concomitant]
     Dosage: UNK
  5. HUMALOG MIX 50/50 [Suspect]
     Dosage: 55 U, EACH EVENING
     Dates: start: 20070101
  6. LANTUS [Concomitant]
     Dosage: UNK
  7. HUMULIN N [Concomitant]
     Dosage: UNK
  8. GLUCOPHAGE [Concomitant]
     Dosage: UNK
  9. LEVEMIR [Concomitant]
     Dosage: UNK
  10. NOVOLOG [Concomitant]
     Dosage: UNK

REACTIONS (6)
  - NASOPHARYNGITIS [None]
  - BLOOD GLUCOSE INCREASED [None]
  - DRUG DOSE OMISSION [None]
  - MALAISE [None]
  - FATIGUE [None]
  - HEADACHE [None]
